FAERS Safety Report 23076582 (Version 1)
Quarter: 2023Q4

REPORT INFORMATION
  Report Type: Report from Study
  Country: EG (occurrence: EG)
  Receive Date: 20231017
  Receipt Date: 20231017
  Transmission Date: 20240110
  Serious: Yes (Other)
  Sender: FDA-Public Use
  Company Number: EG-SANDOZ-SDZ2023EG041532

PATIENT
  Sex: Female

DRUGS (3)
  1. HYRIMOZ [Suspect]
     Active Substance: ADALIMUMAB-ADAZ
     Indication: Ankylosing spondylitis
     Dosage: 40 MG EVERY OTHER WEEK
     Route: 058
  2. SALAZOPYRINE [Concomitant]
     Active Substance: SULFASALAZINE
     Indication: Ankylosing spondylitis
     Dosage: 3 OR 4 TABLETS EVERY 12 HOURS DEPENDS ON THE CONDITION
     Route: 048
  3. Solupred [Concomitant]
     Indication: Ankylosing spondylitis
     Dosage: 1 TABLET EVERY OTHER DAY AND SOMETIMES 1 TABLET EVERY DAY DEPENDS ON THE CONDITION
     Route: 048

REACTIONS (2)
  - Migraine [Recovered/Resolved]
  - Drug ineffective [Unknown]
